FAERS Safety Report 11855001 (Version 3)
Quarter: 2016Q1

REPORT INFORMATION
  Report Type: Spontaneous
  Country: IT (occurrence: IT)
  Receive Date: 20151221
  Receipt Date: 20160303
  Transmission Date: 20160526
  Serious: Yes (Hospitalization)
  Sender: FDA-Public Use
  Company Number: IT-TEVA-617371ACC

PATIENT
  Age: 49 Year
  Sex: Female

DRUGS (9)
  1. RIVOTRIL [Suspect]
     Active Substance: CLONAZEPAM
     Indication: ANXIETY
     Dosage: 100 MG TOTAL
     Route: 048
     Dates: start: 20150418, end: 20150418
  2. TAVOR (LORAZEPAM) [Suspect]
     Active Substance: LORAZEPAM
     Indication: ANXIETY
     Dosage: 40 DF TOTAL, 2 PACKAGES (EQUAL TO 40 TABLETS)
     Route: 048
     Dates: start: 20150418, end: 20150418
  3. TAVOR (LORAZEPAM) [Suspect]
     Active Substance: LORAZEPAM
     Indication: SUICIDE ATTEMPT
     Route: 048
     Dates: start: 20150418, end: 20150418
  4. DOMINANS - 10 MG + 0,5 MG COMPRESSE RIVESTITE, LUNDBECK ITALIA S.P.A [Concomitant]
     Indication: DEPRESSION
     Route: 048
     Dates: start: 20140101, end: 20150418
  5. OXYBUTYNIN HYDROCHLORIDE [Concomitant]
     Active Substance: OXYBUTYNIN CHLORIDE
     Indication: BLADDER SPASM
     Route: 048
     Dates: start: 20140101, end: 20150418
  6. CARBOLITHIUM - 300 MG CAPSULE RIGIDE - TEVA ITALIA S.R.L. [Suspect]
     Active Substance: LITHIUM CARBONATE
     Indication: SUICIDE ATTEMPT
  7. RIVOTRIL [Suspect]
     Active Substance: CLONAZEPAM
     Indication: SUICIDE ATTEMPT
     Dosage: 125MG, EQUAL TO 5 BOTTLES
     Route: 048
     Dates: start: 20150418, end: 20150418
  8. CARBOLITHIUM - 300 MG CAPSULE RIGIDE - TEVA ITALIA S.R.L. [Suspect]
     Active Substance: LITHIUM CARBONATE
     Indication: DEPRESSION
     Dosage: 10 DF TOTAL
     Route: 048
     Dates: start: 20150418, end: 20150418
  9. EN [Suspect]
     Active Substance: DELORAZEPAM
     Indication: SUICIDE ATTEMPT
     Dosage: 20 ML TOTAL (A WHOLE BOTTLE OF 20 ML)
     Route: 048
     Dates: start: 20150418, end: 20150418

REACTIONS (6)
  - Suicide attempt [Unknown]
  - Intentional self-injury [Unknown]
  - Psychomotor retardation [Recovered/Resolved]
  - Drug abuse [Unknown]
  - Sopor [Unknown]
  - Overdose [Recovered/Resolved]

NARRATIVE: CASE EVENT DATE: 20150418
